FAERS Safety Report 12844220 (Version 1)
Quarter: 2016Q4

REPORT INFORMATION
  Report Type: Spontaneous
  Country: US (occurrence: US)
  Receive Date: 20161013
  Receipt Date: 20161013
  Transmission Date: 20170207
  Serious: No
  Sender: FDA-Public Use
  Company Number: US-ROCHE-1761171

PATIENT
  Age: 77 Year
  Sex: Female

DRUGS (5)
  1. METFORMIN [Concomitant]
     Active Substance: METFORMIN HYDROCHLORIDE
     Route: 065
  2. ZELBORAF [Suspect]
     Active Substance: VEMURAFENIB
     Indication: NEOPLASM
     Route: 048
     Dates: start: 20151214
  3. PAROXETINE. [Concomitant]
     Active Substance: PAROXETINE
  4. GABAPENTIN. [Concomitant]
     Active Substance: GABAPENTIN
  5. ALOE VERA GEL [Concomitant]
     Active Substance: ALOE VERA LEAF

REACTIONS (1)
  - Pain in extremity [Not Recovered/Not Resolved]

NARRATIVE: CASE EVENT DATE: 201605
